FAERS Safety Report 9005615 (Version 1)
Quarter: 2013Q1

REPORT INFORMATION
  Report Type: Spontaneous
  Country: US (occurrence: US)
  Receive Date: 20130109
  Receipt Date: 20130109
  Transmission Date: 20140127
  Serious: Yes (Other)
  Sender: FDA-Public Use
  Company Number: US-009507513-1301USA001244

PATIENT
  Age: 53 Year
  Sex: Female

DRUGS (4)
  1. MONTELUKAST SODIUM [Suspect]
  2. ZAFIRLUKAST [Suspect]
     Dosage: 20 MG, BID
  3. [THERAPY UNSPECIFIED] [Concomitant]
     Indication: ASTHMA
  4. [THERAPY UNSPECIFIED] [Concomitant]

REACTIONS (1)
  - Arthritis [Unknown]
